FAERS Safety Report 9009502 (Version 3)
Quarter: 2013Q1

REPORT INFORMATION
  Report Type: Spontaneous
  Country: CA (occurrence: CA)
  Receive Date: 20130110
  Receipt Date: 20130219
  Transmission Date: 20140127
  Serious: Yes (Other)
  Sender: FDA-Public Use
  Company Number: CA-GLAXOSMITHKLINE-A0916234A

PATIENT
  Age: 69 Year
  Sex: Female
  Weight: 57.8 kg

DRUGS (4)
  1. INFLUENZA [Suspect]
     Indication: PROPHYLAXIS
     Route: 065
     Dates: start: 201212, end: 201212
  2. TYKERB [Suspect]
     Indication: BREAST CANCER METASTATIC
     Dosage: 1250MG PER DAY
     Route: 048
     Dates: start: 20100819, end: 20130131
  3. XELODA [Suspect]
     Indication: BREAST CANCER
     Dosage: 1500MG TWICE PER DAY
     Route: 065
     Dates: start: 201008
  4. PAMIDRONATE [Concomitant]
     Indication: BREAST CANCER
     Route: 065

REACTIONS (15)
  - Palmar-plantar erythrodysaesthesia syndrome [Unknown]
  - Dry eye [Unknown]
  - Lacrimation increased [Unknown]
  - Diarrhoea [Unknown]
  - Skin fissures [Unknown]
  - Erythema [Unknown]
  - Influenza [Not Recovered/Not Resolved]
  - Nasopharyngitis [Recovered/Resolved]
  - Chills [Recovered/Resolved]
  - Cough [Recovered/Resolved]
  - Pyrexia [Recovered/Resolved]
  - Sinusitis [Recovered/Resolved]
  - Alopecia [Unknown]
  - Drug ineffective [Recovering/Resolving]
  - Lymphadenopathy [Recovering/Resolving]
